FAERS Safety Report 6308025-6 (Version None)
Quarter: 2009Q3

REPORT INFORMATION
  Report Type: 
  Country: None (occurrence: None)
  Receive Date: 20090813
  Receipt Date: 20090806
  Transmission Date: 20100115
  Serious: Yes (Other)
  Sender: FDA-Public Use
  Company Number: A0800940A

PATIENT
  Age: 56 Year
  Sex: Female

DRUGS (11)
  1. LAMOTRIGINE [Suspect]
     Indication: DEPRESSION
     Route: 048
  2. LAMICTAL [Suspect]
     Indication: DEPRESSION
     Dosage: 200MG PER DAY
     Route: 048
  3. METFORMIN [Concomitant]
  4. CRESTOR [Concomitant]
  5. DIOVAN [Concomitant]
  6. CLONAZEPAM [Concomitant]
  7. FISH OIL [Concomitant]
  8. CALCIUM D [Concomitant]
  9. CO Q10 [Concomitant]
  10. ASPIRIN [Concomitant]
  11. GLUCOSAMINE [Concomitant]

REACTIONS (18)
  - AGGRESSION [None]
  - ANGER [None]
  - ASTHENIA [None]
  - BALANCE DISORDER [None]
  - CONFUSIONAL STATE [None]
  - DEPRESSION [None]
  - DIARRHOEA [None]
  - DISORIENTATION [None]
  - EATING DISORDER [None]
  - EMOTIONAL DISTRESS [None]
  - HYPERSOMNIA [None]
  - MIGRAINE [None]
  - PRURITUS GENERALISED [None]
  - THERAPEUTIC RESPONSE DECREASED [None]
  - TOOTH EXTRACTION [None]
  - TOOTHACHE [None]
  - URTICARIA [None]
  - VISUAL IMPAIRMENT [None]
